FAERS Safety Report 9052448 (Version 5)
Quarter: 2013Q2

REPORT INFORMATION
  Report Type: Report from Study
  Country: ES (occurrence: ES)
  Receive Date: 20130207
  Receipt Date: 20130509
  Transmission Date: 20140414
  Serious: Yes (Other)
  Sender: FDA-Public Use
  Company Number: ES-US-EMD SERONO, INC.-7191672

PATIENT
  Age: 10 Year
  Sex: Female

DRUGS (3)
  1. SAIZEN [Suspect]
     Indication: SMALL FOR DATES BABY
     Route: 058
     Dates: start: 201007, end: 201107
  2. SAIZEN [Suspect]
     Route: 058
     Dates: start: 201107
  3. SAIZEN [Suspect]
     Route: 058
     Dates: end: 20130131

REACTIONS (1)
  - Papilloedema [Recovered/Resolved]
